FAERS Safety Report 8393251-5 (Version None)
Quarter: 2012Q2

REPORT INFORMATION
  Report Type: 
  Country: None (occurrence: None)
  Receive Date: 20120529
  Receipt Date: 20120518
  Transmission Date: 20120825
  Serious: Yes (Death, Other)
  Sender: FDA-Public Use
  Company Number: US-ROCHE-1072681

PATIENT
  Age: 52 Year
  Sex: Female

DRUGS (2)
  1. ALTEPLASE [Suspect]
     Indication: DEEP VEIN THROMBOSIS
     Route: 042
  2. HEPARIN [Suspect]
     Indication: VENOUS THROMBOSIS

REACTIONS (8)
  - LEUKOCYTOSIS [None]
  - COAGULOPATHY [None]
  - MENTAL IMPAIRMENT [None]
  - REPERFUSION INJURY [None]
  - EXTREMITY NECROSIS [None]
  - CEREBRAL HAEMORRHAGE [None]
  - METABOLIC ACIDOSIS [None]
  - LACTIC ACIDOSIS [None]
